FAERS Safety Report 15834743 (Version 5)
Quarter: 2019Q3

REPORT INFORMATION
  Report Type: Report from Study
  Country: GB (occurrence: GB)
  Receive Date: 20190116
  Receipt Date: 20190826
  Transmission Date: 20191004
  Serious: Yes (Hospitalization)
  Sender: FDA-Public Use
  Company Number: GB-PFIZER INC-2018216283

PATIENT
  Age: 46 Year
  Sex: Female

DRUGS (26)
  1. DENOSUMAB [Concomitant]
     Active Substance: DENOSUMAB
     Dosage: 120 MG, MONTHLY
     Route: 058
     Dates: start: 20150623, end: 20170508
  2. DENOSUMAB [Concomitant]
     Active Substance: DENOSUMAB
     Dosage: 120 MG, DAILY
     Route: 048
     Dates: start: 20180815
  3. ADCAL D3 [Concomitant]
     Active Substance: CALCIUM CARBONATE\CHOLECALCIFEROL
     Dosage: UNK
     Route: 048
     Dates: start: 20150623, end: 20150625
  4. OMEPRAZOLE. [Concomitant]
     Active Substance: OMEPRAZOLE
     Indication: GASTROOESOPHAGEAL REFLUX DISEASE
     Dosage: 20 MG, UNK
     Route: 048
     Dates: start: 20150622
  5. DOCETAXEL. [Suspect]
     Active Substance: DOCETAXEL
     Indication: HER-2 POSITIVE BREAST CANCER
     Dosage: 150 MG, EVERY 3 WEEKS
     Route: 042
     Dates: start: 20150421, end: 20150421
  6. TRASTUZUMAB. [Suspect]
     Active Substance: TRASTUZUMAB
     Indication: HER-2 POSITIVE BREAST CANCER
     Dosage: 600 MG, EVERY 3 WEEKS
     Route: 042
     Dates: start: 20150420
  7. TAMIFLU [Concomitant]
     Active Substance: OSELTAMIVIR PHOSPHATE
     Indication: INFLUENZA
     Dosage: 150 MG, UNK
     Route: 048
     Dates: start: 20180219, end: 20180226
  8. TAMIFLU [Concomitant]
     Active Substance: OSELTAMIVIR PHOSPHATE
     Dosage: 75 MG, 1X/DAY
     Route: 048
     Dates: start: 20180219, end: 20180226
  9. DOCETAXEL. [Suspect]
     Active Substance: DOCETAXEL
     Dosage: 120 MG, EVERY 3 WEEKS
     Route: 042
     Dates: start: 20150512, end: 20150804
  10. GAVISCON /00237601/ [Concomitant]
     Active Substance: ALUMINUM HYDROXIDE\MAGNESIUM CARBONATE
     Dosage: UNK
  11. ENOXAPARIN [Concomitant]
     Active Substance: ENOXAPARIN
     Dosage: 40 MG, UNK
     Route: 058
     Dates: start: 20180220
  12. ACICLOVIR [Concomitant]
     Active Substance: ACYCLOVIR
     Dosage: 200 MG, 1X/DAY
     Route: 048
     Dates: start: 20170211, end: 20170218
  13. MEGACE [Concomitant]
     Active Substance: MEGESTROL ACETATE
     Indication: MENOPAUSAL SYMPTOMS
     Dosage: 80 MG, UNK
     Route: 048
     Dates: start: 20150601
  14. LOPERAMIDE [Concomitant]
     Active Substance: LOPERAMIDE
     Dosage: 2 MG, UNK
     Route: 048
     Dates: start: 20150516, end: 20150516
  15. E45 [Concomitant]
     Active Substance: LANOLIN\LIGHT MINERAL OIL\PARAFFIN
     Indication: PRURITUS
     Dosage: 1 TABLESPOON
     Route: 061
     Dates: start: 20160515
  16. HYDROCORTISON /00028601/ [Concomitant]
     Active Substance: HYDROCORTISONE
     Indication: ECZEMA
     Dosage: 1 GTT
     Route: 065
  17. CALCEOS [Concomitant]
     Active Substance: CALCIUM CARBONATE\CHOLECALCIFEROL
     Dosage: UNK
     Route: 048
     Dates: start: 20150713, end: 20150824
  18. LAXIDO [Concomitant]
     Active Substance: POLYETHYLENE GLYCOL 3350\POTASSIUM CHLORIDE\SODIUM BICARBONATE\SODIUM CHLORIDE
     Indication: INFLUENZA
     Dosage: 2 DF, DAILY (1 SACHET)
     Route: 048
     Dates: start: 20180219, end: 20180220
  19. CO-AMOXICLAVE [Concomitant]
     Active Substance: AMOXICILLIN\CLAVULANATE POTASSIUM
     Indication: INFLUENZA
     Dosage: 1875 MG, UNK
     Route: 048
     Dates: start: 20180220, end: 20180225
  20. PERTUZUMAB. [Suspect]
     Active Substance: PERTUZUMAB
     Indication: HER-2 POSITIVE BREAST CANCER
     Dosage: 840 MG, EVERY 3 WEEKS
     Route: 042
     Dates: start: 20150420
  21. DENOSUMAB [Concomitant]
     Active Substance: DENOSUMAB
     Dosage: 240 MG, UNK
     Route: 048
     Dates: start: 20180115
  22. CASSIA SENNA [Concomitant]
     Active Substance: HERBALS\SENNOSIDES
     Indication: INFLUENZA
     Dosage: 1 DF, DAILY
     Route: 048
     Dates: start: 20180219, end: 20180220
  23. CO-AMOXICLAVE [Concomitant]
     Active Substance: AMOXICILLIN\CLAVULANATE POTASSIUM
     Dosage: 625 MG, DAILY
     Route: 048
     Dates: start: 20180220, end: 20180225
  24. NORMAL SALINE [Concomitant]
     Active Substance: SODIUM CHLORIDE
     Indication: ABDOMINAL PAIN
     Dosage: 1000 ML, UNK
     Route: 042
     Dates: start: 20160125, end: 20160125
  25. ACICLOVIR [Concomitant]
     Active Substance: ACYCLOVIR
     Dosage: 800 MG, UNK
     Route: 048
     Dates: start: 20170211, end: 20170218
  26. IBUPROFEN. [Concomitant]
     Active Substance: IBUPROFEN
     Indication: SPINAL PAIN
     Dosage: 400 MG, UNK
     Route: 048
     Dates: start: 20161229

REACTIONS (17)
  - Epistaxis [Not Recovered/Not Resolved]
  - Epistaxis [Recovered/Resolved]
  - Lethargy [Not Recovered/Not Resolved]
  - Nausea [Recovered/Resolved]
  - Constipation [Unknown]
  - Mood swings [Unknown]
  - Dysgeusia [Recovered/Resolved]
  - Gastrooesophageal reflux disease [Recovered/Resolved]
  - Night sweats [Not Recovered/Not Resolved]
  - Sleep disorder [Unknown]
  - Glossodynia [Not Recovered/Not Resolved]
  - Arthralgia [Not Recovered/Not Resolved]
  - Decreased appetite [Recovered/Resolved]
  - Gastritis [Recovered/Resolved]
  - Neutropenic sepsis [Recovered/Resolved]
  - Hypoaesthesia oral [Recovered/Resolved]
  - Headache [Recovered/Resolved]

NARRATIVE: CASE EVENT DATE: 20150420
